FAERS Safety Report 11875965 (Version 1)
Quarter: 2015Q4

REPORT INFORMATION
  Report Type: Other
  Country: US (occurrence: US)
  Receive Date: 20151229
  Receipt Date: 20151229
  Transmission Date: 20160305
  Serious: Yes (Hospitalization)
  Sender: FDA-Public Use
  Company Number: US-CVS-1045971

PATIENT
  Age: 88 Year
  Sex: Female
  Weight: 56.82 kg

DRUGS (3)
  1. SENNA S STOOL SOFTENER WITH LAXATIVE [Suspect]
     Active Substance: DOCUSATE SODIUM\SENNOSIDES
     Route: 048
     Dates: start: 20151101, end: 20151123
  2. SENNA S STOOL SOFTENER WITH LAXATIVE [Suspect]
     Active Substance: DOCUSATE SODIUM\SENNOSIDES
     Route: 048
     Dates: start: 20151101, end: 20151123
  3. SENNA [Suspect]
     Active Substance: SENNA LEAF\SENNOSIDES\SENNOSIDES A AND B
     Indication: CONSTIPATION
     Route: 048
     Dates: start: 20151101, end: 20151123

REACTIONS (2)
  - Intestinal obstruction [Recovered/Resolved]
  - Diarrhoea [None]

NARRATIVE: CASE EVENT DATE: 20151123
